FAERS Safety Report 6451614-9 (Version None)
Quarter: 2009Q4

REPORT INFORMATION
  Report Type: 
  Country: None (occurrence: None)
  Receive Date: 20091120
  Receipt Date: 20091120
  Transmission Date: 20100525
  Serious: Yes (Life-Threatening)
  Sender: FDA-Public Use
  Company Number: None

PATIENT
  Age: 69 Year
  Sex: Female
  Weight: 117.9352 kg

DRUGS (16)
  1. WARFARIN SODIUM [Suspect]
     Indication: AORTIC VALVE REPLACEMENT
     Dosage: 2.5 MG DAILY PO
     Route: 048
  2. NIASPAN [Suspect]
     Indication: BLOOD CHOLESTEROL INCREASED
     Dosage: 500 MG TWICE DAILY PO
     Route: 048
     Dates: start: 20091028, end: 20091117
  3. ATENOLOL [Concomitant]
  4. ASPIRIN [Concomitant]
  5. BENAZEPRIL HYDROCHLORIDE [Concomitant]
  6. FOLIC ACID [Concomitant]
  7. GLIPIZIDE [Concomitant]
  8. POTASSIUM CHLORIDE [Concomitant]
  9. LANTUS [Concomitant]
  10. LIPITOR [Concomitant]
  11. NOVOLOG [Concomitant]
  12. OMACOR -LOVAZA- [Concomitant]
  13. TRICOR [Concomitant]
  14. LEVOTHYROXINE SODIUM [Concomitant]
  15. VITAMIN D [Concomitant]
  16. FUROSEMIDE [Concomitant]

REACTIONS (3)
  - ALCOHOL USE [None]
  - INTERNATIONAL NORMALISED RATIO INCREASED [None]
  - URINE COLOUR ABNORMAL [None]
